FAERS Safety Report 5670651-5 (Version None)
Quarter: 2008Q1

REPORT INFORMATION
  Report Type: 
  Country: None (occurrence: None)
  Receive Date: 20080314
  Receipt Date: 20080314
  Transmission Date: 20080703
  Serious: Yes (Life-Threatening, Hospitalization, Disabling, Other)
  Sender: FDA-Public Use
  Company Number: None

PATIENT
  Age: 44 Year
  Sex: Female
  Weight: 72.5755 kg

DRUGS (2)
  1. METHADONE HCL [Suspect]
     Indication: KNEE OPERATION
     Dosage: 30 MG TWICE DAILY PO
     Route: 048
     Dates: start: 20071116, end: 20080205
  2. METHADONE HCL [Suspect]
     Indication: POSTOPERATIVE ANALGESIA
     Dosage: 30 MG TWICE DAILY PO
     Route: 048
     Dates: start: 20071116, end: 20080205

REACTIONS (22)
  - ANOREXIA [None]
  - ARTHRALGIA [None]
  - CHILLS [None]
  - DYSPNOEA [None]
  - EXTRASYSTOLES [None]
  - FEAR [None]
  - FEELING ABNORMAL [None]
  - FEELING COLD [None]
  - FIBROMYALGIA [None]
  - FOOD CRAVING [None]
  - HEART RATE DECREASED [None]
  - HYPERHIDROSIS [None]
  - HYPOAESTHESIA [None]
  - MALAISE [None]
  - MULTIPLE SCLEROSIS [None]
  - NEURALGIA [None]
  - PAIN [None]
  - PARAESTHESIA [None]
  - SOMNOLENCE [None]
  - SUICIDAL IDEATION [None]
  - SWELLING [None]
  - VIRAL INFECTION [None]
